FAERS Safety Report 4388870-7 (Version None)
Quarter: 2004Q2

REPORT INFORMATION
  Report Type: 
  Country: None (occurrence: None)
  Receive Date: 20040628
  Receipt Date: 20040614
  Transmission Date: 20050107
  Serious: Yes (Hospitalization, Disabling)
  Sender: FDA-Public Use
  Company Number: JP-JNJFOC-20040204745

PATIENT
  Age: 47 Year
  Sex: Female
  Weight: 48.9 kg

DRUGS (7)
  1. REMICADE [Suspect]
     Indication: RHEUMATOID ARTHRITIS
     Dosage: SEE IMAGE
     Route: 041
     Dates: start: 20031022
  2. REMICADE [Suspect]
     Indication: RHEUMATOID ARTHRITIS
     Dosage: SEE IMAGE
     Route: 041
     Dates: start: 20031104
  3. REMICADE [Suspect]
     Indication: RHEUMATOID ARTHRITIS
     Dosage: SEE IMAGE
     Route: 041
     Dates: start: 20031216
  4. RHEUMATREX [Concomitant]
  5. LOXONIN (LOXOPROFEN SODIUM) [Concomitant]
  6. SELBEX (TEPRENONE) [Concomitant]
  7. PREDNISOLONE [Concomitant]

REACTIONS (12)
  - ACTIVITIES OF DAILY LIVING IMPAIRED [None]
  - ALANINE AMINOTRANSFERASE INCREASED [None]
  - ASPARTATE AMINOTRANSFERASE INCREASED [None]
  - ATROPHY [None]
  - BLOOD LACTATE DEHYDROGENASE INCREASED [None]
  - DRUG INEFFECTIVE [None]
  - DYSSTASIA [None]
  - HEPATIC FUNCTION ABNORMAL [None]
  - MYALGIA [None]
  - POLYMYOSITIS [None]
  - WHITE BLOOD CELL COUNT DECREASED [None]
  - WHITE BLOOD CELL COUNT INCREASED [None]
